FAERS Safety Report 7736119-7 (Version None)
Quarter: 2011Q3

REPORT INFORMATION
  Report Type: 
  Country: None (occurrence: None)
  Receive Date: 20110908
  Receipt Date: 20110902
  Transmission Date: 20111222
  Serious: Yes (Hospitalization, Other)
  Sender: FDA-Public Use
  Company Number: US-JNJFOC-20110609755

PATIENT
  Sex: Female

DRUGS (4)
  1. LEVAQUIN [Suspect]
     Indication: SINUSITIS
     Route: 048
  2. AVELOX [Suspect]
     Indication: SINUSITIS
     Route: 048
  3. CIPROFLOXACIN [Suspect]
     Indication: SINUSITIS
     Route: 048
  4. METHYLPREDNISOLONE [Suspect]
     Indication: SINUSITIS
     Route: 065

REACTIONS (1)
  - ROTATOR CUFF SYNDROME [None]
